FAERS Safety Report 16179827 (Version 2)
Quarter: 2019Q2

REPORT INFORMATION
  Report Type: Spontaneous
  Country: JP (occurrence: JP)
  Receive Date: 20190410
  Receipt Date: 20190524
  Transmission Date: 20190711
  Serious: Yes (Hospitalization, Other)
  Sender: FDA-Public Use
  Company Number: JP-ASTRAZENECA-2019SE53409

PATIENT
  Age: 79 Year
  Sex: Female
  Weight: 52 kg

DRUGS (12)
  1. LANSOPRAZOLE. [Concomitant]
     Active Substance: LANSOPRAZOLE
     Dosage: DOSE UNKNOWN
     Route: 048
  2. LASIX [Concomitant]
     Active Substance: FUROSEMIDE
     Dosage: DOSE UNKNOWN
     Route: 048
     Dates: end: 20181212
  3. CANDESARTAN. [Concomitant]
     Active Substance: CANDESARTAN
     Dosage: DOSE UNKNOWN
     Route: 048
  4. VOGLIBOSE [Concomitant]
     Active Substance: VOGLIBOSE
     Dosage: DOSE UNKNOWN
     Route: 048
  5. FML [Concomitant]
     Active Substance: FLUOROMETHOLONE
     Dosage: DOSE UNKNOWN
     Route: 047
  6. CROMOFERON [Concomitant]
     Dosage: DOSE UNKNOWN
     Route: 047
  7. FORXIGA [Suspect]
     Active Substance: DAPAGLIFLOZIN
     Indication: DIABETES MELLITUS
     Route: 048
     Dates: end: 20181212
  8. PURSENNID [SENNOSIDE A+B CALCIUM] [Concomitant]
     Active Substance: SENNOSIDES A AND B
     Dosage: DOSE UNKNOWN
     Route: 048
  9. MAGMITT [Concomitant]
     Active Substance: MAGNESIUM OXIDE
     Dosage: DOSE UNKNOWN
     Route: 048
  10. MOSAPRIDE [Concomitant]
     Active Substance: MOSAPRIDE
     Dosage: DOSE UNKNOWN
     Route: 048
  11. NORMONAL [Concomitant]
     Dosage: DOSE UNKNOWN
     Route: 048
     Dates: end: 20181212
  12. HERBESSER [Concomitant]
     Active Substance: DILTIAZEM HYDROCHLORIDE
     Dosage: DOSE UNKNOWN
     Route: 065

REACTIONS (7)
  - Escherichia bacteraemia [Unknown]
  - Urinary tract infection [Recovered/Resolved]
  - Asthenia [Unknown]
  - Malaise [Unknown]
  - Altered state of consciousness [Unknown]
  - Chills [Unknown]
  - Pyelonephritis [Unknown]

NARRATIVE: CASE EVENT DATE: 20181210
